FAERS Safety Report 5120636-2 (Version None)
Quarter: 2006Q4

REPORT INFORMATION
  Report Type: 
  Country: None (occurrence: None)
  Receive Date: 20061002
  Receipt Date: 20060911
  Transmission Date: 20070319
  Serious: Yes (Hospitalization)
  Sender: FDA-Public Use
  Company Number: CH200512003152

PATIENT
  Age: 50 Year
  Sex: Female

DRUGS (5)
  1. GEMCITABINE [Suspect]
     Indication: BILIARY CANCER METASTATIC
     Dosage: 1800 MG, DAYS 1 AND 8 Q3W, INTRAVENOUS
     Route: 042
     Dates: start: 20051128, end: 20060502
  2. CAPECITABINE (CAPECITABINE) [Suspect]
     Indication: BILIARY CANCER METASTATIC
     Dosage: 2500 DAILY (1/D)
     Dates: start: 20051205, end: 20051212
  3. CAPECITABINE (CAPECITABINE) [Suspect]
     Indication: BILIARY CANCER METASTATIC
     Dosage: 2500 DAILY (1/D)
     Dates: start: 20051128, end: 20060502
  4. PANTOPRAZOLE SODIUM [Concomitant]
  5. TRAMADOL HCL [Concomitant]

REACTIONS (2)
  - OTITIS MEDIA BACTERIAL [None]
  - STREPTOCOCCAL INFECTION [None]
